FAERS Safety Report 13027284 (Version 1)
Quarter: 2016Q4

REPORT INFORMATION
  Report Type: Spontaneous
  Country: US (occurrence: US)
  Receive Date: 20161214
  Receipt Date: 20161214
  Transmission Date: 20170207
  Serious: No
  Sender: FDA-Public Use
  Company Number: US-PFIZER INC-2016565724

PATIENT
  Age: 75 Year
  Sex: Female

DRUGS (2)
  1. LIDOCAINE HCL [Suspect]
     Active Substance: LIDOCAINE HYDROCHLORIDE
     Dosage: UNK
  2. XYLOCAINE [Suspect]
     Active Substance: LIDOCAINE HYDROCHLORIDE
     Dosage: UNK

REACTIONS (4)
  - Drug hypersensitivity [Unknown]
  - Swelling face [Unknown]
  - Swelling [Unknown]
  - Swollen tongue [Unknown]
